FAERS Safety Report 5382291-6 (Version None)
Quarter: 2007Q3

REPORT INFORMATION
  Report Type: 
  Country: None (occurrence: None)
  Receive Date: 20070705
  Receipt Date: 20070618
  Transmission Date: 20080115
  Serious: Yes (Hospitalization)
  Sender: FDA-Public Use
  Company Number: 2007SP013109

PATIENT
  Age: 5 Year
  Sex: Female

DRUGS (2)
  1. BETAMETHASONE [Suspect]
     Indication: RHINITIS ALLERGIC
     Dosage: 1 GTT; QD;
     Dates: start: 20061201, end: 20070401
  2. RIKKUNSHI-TO [Concomitant]

REACTIONS (6)
  - ADRENAL INSUFFICIENCY [None]
  - BLOOD GLUCOSE DECREASED [None]
  - BODY TEMPERATURE DECREASED [None]
  - CUSHING'S SYNDROME [None]
  - OTITIS MEDIA ACUTE [None]
  - STRESS [None]
